FAERS Safety Report 6600912-4 (Version None)
Quarter: 2010Q1

REPORT INFORMATION
  Report Type: 
  Country: None (occurrence: None)
  Receive Date: 20100225
  Receipt Date: 20100215
  Transmission Date: 20100710
  Serious: Yes (Hospitalization)
  Sender: FDA-Public Use
  Company Number: CA-JNJFOC-20100207090

PATIENT
  Sex: Female
  Weight: 50.6 kg

DRUGS (7)
  1. REMICADE [Suspect]
     Indication: COLITIS ULCERATIVE
     Route: 042
  2. URSO 250 [Concomitant]
     Route: 048
  3. CALCIUM [Concomitant]
     Route: 048
  4. IRON [Concomitant]
     Route: 048
  5. VITAMIN D [Concomitant]
     Route: 048
  6. CHOLESTYRAMINE [Concomitant]
     Dosage: 1 PACK
     Route: 048
  7. BIRTH CONTROL PILL [Concomitant]

REACTIONS (2)
  - PANCREATITIS [None]
  - PROCEDURAL COMPLICATION [None]
